FAERS Safety Report 25374863 (Version 2)
Quarter: 2025Q2

REPORT INFORMATION
  Report Type: Report from Study
  Country: CA (occurrence: CA)
  Receive Date: 20250529
  Receipt Date: 20250619
  Transmission Date: 20250717
  Serious: Yes (Hospitalization, Other)
  Sender: SANDOZ
  Company Number: CA-002147023-NVSC2022CA234695

PATIENT
  Age: 62 Year
  Sex: Female

DRUGS (2)
  1. HYRIMOZ [Suspect]
     Active Substance: ADALIMUMAB-ADAZ
     Dosage: 40 MG, Q2W
     Route: 058
     Dates: start: 20220815
  2. HYRIMOZ [Suspect]
     Active Substance: ADALIMUMAB-ADAZ
     Indication: Rheumatoid arthritis
     Dosage: 40 MG, BIW
     Route: 058
     Dates: start: 20220815

REACTIONS (10)
  - Abdominal operation [Unknown]
  - Abdominal pain [Not Recovered/Not Resolved]
  - Metabolic surgery [Unknown]
  - Muscle atrophy [Unknown]
  - Arthralgia [Unknown]
  - Pain [Unknown]
  - Tremor [Recovered/Resolved]
  - General physical health deterioration [Unknown]
  - Injection site discomfort [Recovered/Resolved]
  - Injection site pain [Recovered/Resolved]

NARRATIVE: CASE EVENT DATE: 20241210
